FAERS Safety Report 18559276 (Version 1)
Quarter: 2020Q4

REPORT INFORMATION
  Report Type: Spontaneous
  Country: US (occurrence: US)
  Receive Date: 20201127
  Receipt Date: 20201127
  Transmission Date: 20210114
  Serious: No
  Sender: FDA-Public Use
  Company Number: None

PATIENT
  Age: 39 Year
  Sex: Male
  Weight: 111 kg

DRUGS (10)
  1. CLONDINE 0.5 MG [Concomitant]
  2. SILDENAFIL 100 MG [Concomitant]
     Active Substance: SILDENAFIL
  3. CARVEDILOL 12.5 MG [Concomitant]
     Active Substance: CARVEDILOL
  4. PREGABALIN. [Suspect]
     Active Substance: PREGABALIN
     Route: 048
     Dates: start: 20201120, end: 20201127
  5. BACLOFEN 10 MG [Concomitant]
     Active Substance: BACLOFEN
  6. ATORVASTATIN 40 MG [Concomitant]
     Active Substance: ATORVASTATIN
  7. LISINOPRIL 40 MG [Concomitant]
     Active Substance: LISINOPRIL
  8. AMLODIPINE 10 MG [Concomitant]
     Active Substance: AMLODIPINE BESYLATE
  9. HYDRALAZINE 100 MG [Concomitant]
  10. CHLORTHALIDONE 25 MG [Concomitant]
     Active Substance: CHLORTHALIDONE

REACTIONS (3)
  - Somnolence [None]
  - Dizziness [None]
  - Confusional state [None]

NARRATIVE: CASE EVENT DATE: 20201124
